FAERS Safety Report 8370047-1 (Version None)
Quarter: 2012Q2

REPORT INFORMATION
  Report Type: 
  Country: None (occurrence: None)
  Receive Date: 20120518
  Receipt Date: 20120516
  Transmission Date: 20120825
  Serious: Yes (Life-Threatening, Hospitalization, Other)
  Sender: FDA-Public Use
  Company Number: PHHY2011JP91480

PATIENT
  Sex: Male
  Weight: 52 kg

DRUGS (41)
  1. TELEMINSOFT [Concomitant]
     Dosage: UNK UKN, UNK
     Dates: start: 20110926
  2. VITAMIN B12 [Concomitant]
     Dosage: 1500 UG, UNK
     Route: 048
     Dates: start: 20110928, end: 20111124
  3. VITAMIN B12 [Concomitant]
     Dosage: 1500 UG, UNK
     Route: 048
  4. SOLITA-T3 INJECTION [Concomitant]
     Dosage: 1000 ML, UNK
     Route: 041
  5. SOLITA-T3 INJECTION [Concomitant]
     Dosage: 500 ML, UNK
     Route: 041
  6. VEEN-F [Concomitant]
     Dosage: 500 ML, UNK
     Route: 041
     Dates: start: 20111004, end: 20111022
  7. VEEN-F [Concomitant]
     Dosage: 1000 ML, UNK
     Route: 041
  8. SORAFENIB TOSILATE [Concomitant]
     Indication: METASTATIC RENAL CELL CARCINOMA
     Dosage: 800 MG, UNK
     Route: 048
     Dates: start: 20100810, end: 20110601
  9. AFINITOR [Suspect]
     Dosage: 5 MG, DAILY
     Route: 048
     Dates: start: 20110803
  10. ADALAT [Concomitant]
     Dosage: 20 MG,
     Route: 048
     Dates: end: 20110728
  11. MUCOSTA [Concomitant]
     Dosage: 100 MG, UNK
     Dates: start: 20110928, end: 20111124
  12. SOLITA-T3 INJECTION [Concomitant]
     Dosage: 1500 ML, UNK
     Route: 041
  13. PIPEYUNCIN [Concomitant]
     Dosage: 2 G, UNK
     Route: 041
     Dates: end: 20110928
  14. SODIUM CHLORIDE [Concomitant]
     Dosage: 200 ML, UNK
     Route: 041
  15. FUROSEMIDE [Concomitant]
     Dosage: UNK UKN, UNK
     Route: 041
     Dates: start: 20110926, end: 20111024
  16. ASPIRIN [Concomitant]
     Dosage: 100 MG,
     Dates: end: 20111020
  17. SODIUM CHLORIDE [Concomitant]
     Dosage: 100 ML, UNK
     Route: 041
     Dates: start: 20110926, end: 20110928
  18. WYSTAL [Concomitant]
     Dosage: 2 G, UNK
     Route: 041
     Dates: start: 20110929, end: 20111005
  19. AFINITOR [Suspect]
     Indication: METASTATIC RENAL CELL CARCINOMA
     Dosage: 5 MG, DAILY
     Route: 048
     Dates: start: 20110616, end: 20110728
  20. LOSARTAN POTASSIUM AND HYDROCHLOROTHIAZIDE [Concomitant]
     Dosage: 1 DF,
     Route: 048
     Dates: start: 20110729, end: 20111024
  21. MYSER [Concomitant]
     Dosage: UNK UKN, UNK
     Route: 048
     Dates: start: 20110924
  22. VITAMIN B12 [Concomitant]
     Dosage: 2000 UG, UNK
     Route: 048
  23. HALCION [Concomitant]
     Dosage: 0.25 MG, UNK
     Route: 048
     Dates: start: 20110928, end: 20111124
  24. PIPEYUNCIN [Concomitant]
     Dosage: 1 G, UNK
     Route: 041
     Dates: start: 20110926
  25. VEEN-F [Concomitant]
     Dosage: 1000 ML, UNK
     Route: 040
  26. JUZENTAIHOTO [Concomitant]
     Dosage: 7.5 MG, UNK
     Route: 048
     Dates: start: 20110928, end: 20111124
  27. NIRENA [Concomitant]
     Dosage: 30 MG, UNK
     Route: 048
  28. VEEN-F [Concomitant]
     Dosage: 500 ML, UNK
     Route: 041
  29. AFINITOR [Suspect]
     Dosage: 5 MG, DAILY
     Route: 048
     Dates: start: 20111012, end: 20111020
  30. HALTHROW OD [Concomitant]
     Dosage: 0.2 MG,
     Route: 048
     Dates: end: 20110728
  31. HIRUDOID [Concomitant]
     Dosage: UNK UKN, UNK
     Dates: start: 20110924
  32. SOLITA-T3 INJECTION [Concomitant]
     Dosage: 1000 ML, UNK
     Route: 041
     Dates: start: 20110926, end: 20111021
  33. VEEN-F [Concomitant]
     Dosage: 500 ML, UNK
     Route: 041
  34. ASPIRIN [Concomitant]
     Dosage: 100 MG,
     Route: 048
  35. ASPIRIN [Concomitant]
     Dosage: 150 MG,
     Route: 048
  36. TAMSULOSIN HCL [Concomitant]
     Dosage: 2 MG,
     Route: 048
     Dates: start: 20110729, end: 20111020
  37. NIRENA [Concomitant]
     Dosage: 20 MG, UNK
     Route: 048
     Dates: start: 20110928, end: 20111124
  38. NIRENA [Concomitant]
     Dosage: 20 MG, UNK
     Route: 048
  39. AZUNOL [Concomitant]
     Dosage: UNK UKN, UNK
     Dates: start: 20111017
  40. ALBUMIN (HUMAN) [Concomitant]
     Dosage: 50 ML, UNK
     Route: 041
     Dates: start: 20111004, end: 20111006
  41. SOLITA-T1 INJECTION [Concomitant]
     Dosage: 500 ML, UNK
     Route: 041
     Dates: start: 20111123, end: 20111124

REACTIONS (9)
  - BLOOD UREA INCREASED [None]
  - HAEMATOCRIT DECREASED [None]
  - C-REACTIVE PROTEIN INCREASED [None]
  - BLOOD CREATININE INCREASED [None]
  - PLEURAL EFFUSION [None]
  - LYMPHOCYTE COUNT DECREASED [None]
  - HAEMOGLOBIN DECREASED [None]
  - EOSINOPHIL COUNT INCREASED [None]
  - RENAL FAILURE [None]
